FAERS Safety Report 6079749-3 (Version None)
Quarter: 2009Q1

REPORT INFORMATION
  Report Type: 
  Country: None (occurrence: None)
  Receive Date: 20090212
  Receipt Date: 20090130
  Transmission Date: 20090719
  Serious: Yes (Death, Hospitalization)
  Sender: FDA-Public Use
  Company Number: A-JP2009-23335

PATIENT
  Age: 62 Year
  Sex: Male
  Weight: 52 kg

DRUGS (6)
  1. TRACLEER [Suspect]
     Indication: PULMONARY ARTERIAL HYPERTENSION
     Dosage: 62.5 MG, QD, ORAL
     Route: 048
     Dates: start: 20081204, end: 20081228
  2. OXYGEN (OXYGEN) [Concomitant]
  3. ETIZOLAM (ETIZOLAM) [Concomitant]
  4. PRAVASTATIN SODIUM [Concomitant]
  5. ACARBOSE [Concomitant]
  6. INSULIN ASPART (INSULIN ASPART) [Concomitant]

REACTIONS (4)
  - MOBILITY DECREASED [None]
  - NASOPHARYNGITIS [None]
  - PNEUMONIA [None]
  - RESPIRATORY ARREST [None]
